FAERS Safety Report 10724774 (Version 3)
Quarter: 2015Q1

REPORT INFORMATION
  Report Type: Spontaneous
  Country: ES (occurrence: ES)
  Receive Date: 20150120
  Receipt Date: 20150209
  Transmission Date: 20150721
  Serious: Yes (Life-Threatening)
  Sender: FDA-Public Use
  Company Number: ES-JNJFOC-20150111256

PATIENT
  Age: 50 Year
  Sex: Male

DRUGS (1)
  1. REMICADE [Suspect]
     Active Substance: INFLIXIMAB
     Indication: MENINGORADICULITIS
     Route: 042
     Dates: start: 200801, end: 201402

REACTIONS (2)
  - Product use issue [Unknown]
  - Adenosquamous cell lung cancer [Unknown]

NARRATIVE: CASE EVENT DATE: 201404
